FAERS Safety Report 5292289-4 (Version None)
Quarter: 2007Q2

REPORT INFORMATION
  Report Type: 
  Country: None (occurrence: None)
  Receive Date: 20070403
  Receipt Date: 20070327
  Transmission Date: 20071010
  Serious: Yes (Life-Threatening)
  Sender: FDA-Public Use
  Company Number: TCI2007A00974

PATIENT
  Age: 52 Year
  Sex: Male

DRUGS (8)
  1. ACTOS [Suspect]
     Indication: DIABETES MELLITUS
     Dosage: 15 MG (15 MG, 1 IN 1 D) PER ORAL
     Route: 048
     Dates: start: 20070113, end: 20070210
  2. BASEN TABLETS 0.3 (VOGLIBOSE) [Concomitant]
  3. GASPORT (FAMOTIDINE) [Concomitant]
  4. BUFFERIN [Concomitant]
  5. NICORANTA (NICORANDIL) [Concomitant]
  6. TICLOPIDINE HCL [Concomitant]
  7. AMARYL [Concomitant]
  8. LOSARTAN POTASSIUM [Concomitant]

REACTIONS (1)
  - PLATELET COUNT DECREASED [None]
